FAERS Safety Report 17798574 (Version 1)
Quarter: 2020Q2

REPORT INFORMATION
  Report Type: Spontaneous
  Country: US (occurrence: US)
  Receive Date: 20200518
  Receipt Date: 20200518
  Transmission Date: 20200714
  Serious: Yes (Other)
  Sender: FDA-Public Use
  Company Number: None

PATIENT
  Age: 23 Year
  Sex: Male
  Weight: 85.5 kg

DRUGS (12)
  1. HYDROXYCHLOROQUINE [Concomitant]
     Active Substance: HYDROXYCHLOROQUINE
  2. ACETAMINOPHEN. [Concomitant]
     Active Substance: ACETAMINOPHEN
  3. ASPIRIN. [Concomitant]
     Active Substance: ASPIRIN
  4. DEXTROMETHORPHAN [Concomitant]
     Active Substance: DEXTROMETHORPHAN
  5. IBUPROFEN. [Concomitant]
     Active Substance: IBUPROFEN
  6. ZINC SULFATE. [Concomitant]
     Active Substance: ZINC SULFATE
  7. ENOXAPARIN [Concomitant]
     Active Substance: ENOXAPARIN
  8. VITAMIN C [Concomitant]
     Active Substance: ASCORBIC ACID
  9. PREDNISONE. [Concomitant]
     Active Substance: PREDNISONE
  10. REMDESIVIR 200 MG [Suspect]
     Active Substance: REMDESIVIR
     Indication: COVID-19
     Route: 042
     Dates: start: 20200508, end: 20200509
  11. BENZONATATE. [Concomitant]
     Active Substance: BENZONATATE
  12. ALBUTEROL HFA [Concomitant]
     Active Substance: ALBUTEROL SULFATE

REACTIONS (3)
  - Drug ineffective [None]
  - Therapy cessation [None]
  - Liver function test increased [None]

NARRATIVE: CASE EVENT DATE: 20200509
